FAERS Safety Report 5480943-0 (Version None)
Quarter: 2007Q4

REPORT INFORMATION
  Report Type: 
  Country: None (occurrence: None)
  Receive Date: 20071004
  Receipt Date: 20070924
  Transmission Date: 20080405
  Serious: Yes (Congenital Anomaly)
  Sender: FDA-Public Use
  Company Number: 2007AL003986

PATIENT
  Age: 48 Month

DRUGS (2)
  1. DIAZEPAM [Suspect]
  2. AMITRIPTYLINE HCL [Concomitant]

REACTIONS (2)
  - DRUG EXPOSURE DURING PREGNANCY [None]
  - NYSTAGMUS [None]
